FAERS Safety Report 13611170 (Version 2)
Quarter: 2017Q2

REPORT INFORMATION
  Report Type: Report from Study
  Country: US (occurrence: US)
  Receive Date: 20170605
  Receipt Date: 20170609
  Transmission Date: 20170830
  Serious: Yes (Death)
  Sender: FDA-Public Use
  Company Number: US-ROCHE-1943992

PATIENT
  Sex: Female

DRUGS (2)
  1. KADCYLA [Suspect]
     Active Substance: ADO-TRASTUZUMAB EMTANSINE
     Indication: PRODUCT USED FOR UNKNOWN INDICATION
     Route: 065
  2. HERCEPTIN [Suspect]
     Active Substance: TRASTUZUMAB
     Indication: BREAST CANCER FEMALE
     Route: 042
     Dates: end: 20170326

REACTIONS (1)
  - Death [Fatal]
